FAERS Safety Report 15537765 (Version 1)
Quarter: 2018Q4

REPORT INFORMATION
  Report Type: Spontaneous
  Country: US (occurrence: US)
  Receive Date: 20181016
  Receipt Date: 20181016
  Transmission Date: 20190205
  Serious: Yes (Hospitalization)
  Sender: FDA-Public Use
  Company Number: None

PATIENT
  Age: 62 Year
  Sex: Male

DRUGS (2)
  1. LIALDA [Concomitant]
     Active Substance: MESALAMINE
  2. REPATHA [Suspect]
     Active Substance: EVOLOCUMAB
     Indication: COLITIS ULCERATIVE
     Route: 058
     Dates: start: 20170828

REACTIONS (1)
  - Multiple fractures [None]
